FAERS Safety Report 8273800-8 (Version None)
Quarter: 2012Q2

REPORT INFORMATION
  Report Type: 
  Country: None (occurrence: None)
  Receive Date: 20120411
  Receipt Date: 20120330
  Transmission Date: 20120825
  Serious: Yes (Other)
  Sender: FDA-Public Use
  Company Number: US-SANOFI-AVENTIS-2011SA014893

PATIENT
  Age: 65 Year
  Sex: Female
  Weight: 58.59 kg

DRUGS (9)
  1. PLAVIX [Suspect]
     Route: 065
  2. COUMADIN [Suspect]
  3. PLAVIX [Suspect]
     Route: 065
  4. FENOFIBRATE [Suspect]
  5. PLAVIX [Suspect]
     Route: 065
  6. PLAVIX [Suspect]
     Route: 065
  7. PLAVIX [Suspect]
     Route: 065
  8. PLAVIX [Suspect]
     Route: 065
  9. ATORVASTATIN [Suspect]

REACTIONS (9)
  - DEEP VEIN THROMBOSIS [None]
  - UNEVALUABLE EVENT [None]
  - MYALGIA [None]
  - ILL-DEFINED DISORDER [None]
  - PULMONARY EMBOLISM [None]
  - DRUG DOSE OMISSION [None]
  - ARTHRALGIA [None]
  - HIATUS HERNIA [None]
  - DRUG INEFFECTIVE [None]
